FAERS Safety Report 23760223 (Version 1)
Quarter: 2024Q2

REPORT INFORMATION
  Report Type: Spontaneous
  Country: US (occurrence: US)
  Receive Date: 20240419
  Receipt Date: 20240419
  Transmission Date: 20240715
  Serious: Yes (Other)
  Sender: FDA-Public Use
  Company Number: US-009507513-2404USA006700

PATIENT
  Sex: Female

DRUGS (1)
  1. SIVEXTRO [Suspect]
     Active Substance: TEDIZOLID PHOSPHATE
     Route: 048

REACTIONS (4)
  - Mycobacterium abscessus infection [Unknown]
  - Periorbital infection [Unknown]
  - Drug intolerance [Unknown]
  - Blood disorder [Unknown]
